FAERS Safety Report 10170461 (Version 2)
Quarter: 2014Q2

REPORT INFORMATION
  Report Type: Spontaneous
  Country: US (occurrence: US)
  Receive Date: 20140513
  Receipt Date: 20140605
  Transmission Date: 20141212
  Serious: No
  Sender: FDA-Public Use
  Company Number: US-009507513-1405USA005756

PATIENT
  Sex: Female
  Weight: 77.3 kg

DRUGS (12)
  1. OXYTROL FOR WOMEN [Suspect]
     Indication: PRODUCT USED FOR UNKNOWN INDICATION
     Dosage: UNK, UNKNOWN
     Route: 062
     Dates: start: 20140414, end: 201405
  2. AMIODARONE [Concomitant]
     Indication: CARDIAC DISORDER
  3. LEVOTHROID [Concomitant]
     Indication: CARDIAC DISORDER
  4. FUROSEMIDE [Concomitant]
     Indication: CARDIAC DISORDER
  5. SPIRONOLACTONE [Concomitant]
     Indication: CARDIAC DISORDER
  6. OMEPRAZOLE [Concomitant]
     Indication: CARDIAC DISORDER
  7. CARVEDILOL [Concomitant]
     Indication: CARDIAC DISORDER
  8. IRON (UNSPECIFIED) [Concomitant]
     Indication: CARDIAC DISORDER
  9. CALTRATE (CALCIUM CARBONATE) [Concomitant]
     Indication: CARDIAC DISORDER
  10. CENTRUM SILVER [Concomitant]
     Indication: CARDIAC DISORDER
  11. ASPIRIN [Concomitant]
     Indication: CARDIAC DISORDER
     Dosage: LOW DOSE
  12. PRAVASTATIN SODIUM [Concomitant]
     Indication: CARDIAC DISORDER

REACTIONS (2)
  - Drug ineffective [Unknown]
  - Product adhesion issue [Unknown]
